FAERS Safety Report 16897723 (Version 1)
Quarter: 2019Q4

REPORT INFORMATION
  Report Type: Spontaneous
  Country: GB (occurrence: GB)
  Receive Date: 20191009
  Receipt Date: 20191009
  Transmission Date: 20200122
  Serious: Yes (Other)
  Sender: FDA-Public Use
  Company Number: GB-TEVA-2019-GB-1118218

PATIENT
  Age: 35 Year
  Sex: Female
  Weight: 66 kg

DRUGS (7)
  1. SALBUTAMOL [Concomitant]
     Active Substance: ALBUTEROL
     Dosage: 2 DOSES AS NEEDED, 3 DF
     Route: 055
     Dates: start: 20190703, end: 20190731
  2. CLARITHROMYCIN. [Suspect]
     Active Substance: CLARITHROMYCIN
     Dosage: 500 MG
     Dates: start: 20190801
  3. PANTOPRAZOLE [Concomitant]
     Active Substance: PANTOPRAZOLE
     Dosage: 1 DF
     Dates: start: 20180330, end: 20190725
  4. FOSTAIR [Concomitant]
     Active Substance: BECLOMETHASONE\FORMOTEROL
     Dosage: PUFFS.
     Dates: start: 20190307
  5. DOXYCYCLINE. [Concomitant]
     Active Substance: DOXYCYCLINE
     Dosage: TWO NOW THEN ONE DAILY
     Dates: start: 20190802
  6. RANITIDINE. [Concomitant]
     Active Substance: RANITIDINE
     Dosage: 2 DF
     Dates: start: 20190730
  7. MIRENA [Concomitant]
     Active Substance: LEVONORGESTREL
     Dosage: TO BE FITTED BY A PHYSICIAN
     Dates: start: 20190523, end: 20190524

REACTIONS (5)
  - Cough [Unknown]
  - Chest discomfort [Unknown]
  - Rash erythematous [Recovered/Resolved]
  - Dyspnoea [Unknown]
  - Throat tightness [Unknown]

NARRATIVE: CASE EVENT DATE: 20190805
